FAERS Safety Report 8439734-0 (Version None)
Quarter: 2012Q2

REPORT INFORMATION
  Report Type: 
  Country: None (occurrence: None)
  Receive Date: 20120615
  Receipt Date: 20120608
  Transmission Date: 20120825
  Serious: Yes (Hospitalization, Other)
  Sender: FDA-Public Use
  Company Number: FR-UCBSA-059328

PATIENT
  Age: 83 Year
  Sex: Male

DRUGS (7)
  1. ASPIRIN [Concomitant]
  2. KEPPRA [Suspect]
     Indication: CONVULSION
     Route: 048
     Dates: start: 20120517, end: 20120519
  3. FLECAINIDE ACETATE [Concomitant]
  4. RILUTEK [Concomitant]
  5. SECTRAL [Concomitant]
  6. ATORVASTATIN [Concomitant]
  7. ALDACTONE [Concomitant]

REACTIONS (4)
  - HYPERTONIA [None]
  - HYPONATRAEMIA [None]
  - COMA [None]
  - SOMNOLENCE [None]
